FAERS Safety Report 8971173 (Version 2)
Quarter: 2013Q2

REPORT INFORMATION
  Report Type: Spontaneous
  Country: US (occurrence: US)
  Receive Date: 20121217
  Receipt Date: 20130419
  Transmission Date: 20140414
  Serious: Yes (Hospitalization)
  Sender: FDA-Public Use
  Company Number: US-GLAXOSMITHKLINE-A0899024A

PATIENT
  Age: 58 Year
  Sex: Male

DRUGS (10)
  1. AVANDIA [Suspect]
     Indication: DIABETES MELLITUS
     Dosage: 8MG PER DAY
     Route: 048
     Dates: end: 200704
  2. NORGESIC FORTE [Concomitant]
  3. LASIX [Concomitant]
  4. CLONIDINE [Concomitant]
  5. NEXIUM [Concomitant]
  6. GLUCOTROL XL [Concomitant]
  7. TYLENOL [Concomitant]
  8. VISTARIL [Concomitant]
  9. ZOCOR [Concomitant]
  10. GAS X [Concomitant]

REACTIONS (4)
  - Loss of consciousness [Not Recovered/Not Resolved]
  - Heart rate decreased [Unknown]
  - Cardiac pacemaker insertion [Unknown]
  - Atrioventricular block complete [Unknown]
